FAERS Safety Report 10187374 (Version 1)
Quarter: 2014Q2

REPORT INFORMATION
  Report Type: Spontaneous
  Country: US (occurrence: None)
  Receive Date: 20140521
  Receipt Date: 20140521
  Transmission Date: 20141212
  Serious: Yes (Hospitalization)
  Sender: FDA-Public Use
  Company Number: None

PATIENT
  Age: 48 Year
  Sex: Male

DRUGS (9)
  1. SOVALDI 400MG GILEAD SCIENCES [Suspect]
     Indication: HEPATITIS C
     Dosage: 10 WEEKS, 1 TABLET, QD, ORAL
     Route: 048
  2. PEGASYS 180MCG [Concomitant]
  3. RIBAVIRIN 600MG [Concomitant]
  4. TRUVADA [Concomitant]
  5. NORVIR [Concomitant]
  6. LOTREL [Concomitant]
  7. LEXIVA [Concomitant]
  8. LORTAB [Concomitant]
  9. PROCHLORPERAZINE MALEATE [Concomitant]

REACTIONS (1)
  - Mood altered [None]
